FAERS Safety Report 21939372 (Version 1)
Quarter: 2023Q1

REPORT INFORMATION
  Report Type: Report from Study
  Country: US (occurrence: US)
  Receive Date: 20230201
  Receipt Date: 20230201
  Transmission Date: 20230418
  Serious: No
  Sender: FDA-Public Use
  Company Number: US-EXELIXIS-CABO-21047020

PATIENT
  Age: 65 Year
  Sex: Female

DRUGS (1)
  1. CABOMETYX [Suspect]
     Active Substance: CABOZANTINIB S-MALATE
     Indication: Product used for unknown indication
     Dosage: 40 MG, QD
     Route: 048
     Dates: start: 202111

REACTIONS (11)
  - Tongue discomfort [Unknown]
  - Hypoaesthesia [Unknown]
  - Limb injury [Unknown]
  - Sleep disorder [Unknown]
  - Blister [Unknown]
  - Tongue ulceration [Not Recovered/Not Resolved]
  - Skin irritation [Unknown]
  - Genital rash [Unknown]
  - Pruritus [Unknown]
  - Blood pressure increased [Recovered/Resolved]
  - Fatigue [Unknown]

NARRATIVE: CASE EVENT DATE: 20220101
